FAERS Safety Report 7585372-1 (Version None)
Quarter: 2011Q2

REPORT INFORMATION
  Report Type: 
  Country: None (occurrence: None)
  Receive Date: 20110628
  Receipt Date: 20110628
  Transmission Date: 20111010
  Serious: Yes (Life-Threatening)
  Sender: FDA-Public Use
  Company Number: None

PATIENT
  Sex: Male
  Weight: 88.4514 kg

DRUGS (2)
  1. CLARITHROMYCIN [Suspect]
     Indication: PHARYNGITIS STREPTOCOCCAL
     Dosage: 250MG 2 TIMES A DAY PO
     Route: 048
     Dates: start: 20110621, end: 20110627
  2. CLARITHROMYCIN [Suspect]
     Indication: PYREXIA
     Dosage: 250MG 2 TIMES A DAY PO
     Route: 048
     Dates: start: 20110621, end: 20110627

REACTIONS (3)
  - PALPITATIONS [None]
  - HEART RATE IRREGULAR [None]
  - HEART RATE INCREASED [None]
